FAERS Safety Report 5028513-2 (Version None)
Quarter: 2006Q2

REPORT INFORMATION
  Report Type: 
  Country: None (occurrence: None)
  Receive Date: 20060617
  Receipt Date: 20060524
  Transmission Date: 20061013
  Serious: Yes (Death)
  Sender: FDA-Public Use
  Company Number: PHHO2006JP08493

PATIENT
  Age: 76 Year
  Sex: Female

DRUGS (2)
  1. DIOVAN [Suspect]
     Indication: HYPERTENSION
     Dosage: 40 MG, QD
     Route: 048
     Dates: start: 20030417, end: 20030507
  2. DIOVAN [Suspect]
     Dates: start: 20030508

REACTIONS (1)
  - SUDDEN DEATH [None]
